FAERS Safety Report 5268631-7 (Version None)
Quarter: 2007Q1

REPORT INFORMATION
  Report Type: 
  Country: None (occurrence: None)
  Receive Date: 20070313
  Receipt Date: 20070310
  Transmission Date: 20070707
  Serious: Yes (Life-Threatening)
  Sender: FDA-Public Use
  Company Number: 235851

PATIENT
  Age: 77 Year
  Sex: Female

DRUGS (6)
  1. MABTHERA (RITUXIMAB) CONC FOR SOLUTION FOR INFUSION [Suspect]
     Indication: CHRONIC LYMPHOCYTIC LEUKAEMIA
     Dosage: 600 MG, QD, INTRAVENOUS
     Route: 042
     Dates: start: 20070111
  2. CELECTOL (CELIPROLOL HYDROCHLORIDE) [Suspect]
     Dosage: 100 MG, QD, ORAL
     Route: 048
     Dates: end: 20070112
  3. ZOFRAN [Concomitant]
  4. DOLIPRANE (ACETAMINOPHEN) [Concomitant]
  5. SOLU-MEDROL [Concomitant]
  6. POLARAMINE [Concomitant]

REACTIONS (5)
  - BRADYCARDIA [None]
  - DRUG INTERACTION [None]
  - HYPERHIDROSIS [None]
  - HYPOTENSION [None]
  - VOMITING [None]
